FAERS Safety Report 6644510-5 (Version None)
Quarter: 2010Q1

REPORT INFORMATION
  Report Type: 
  Country: None (occurrence: None)
  Receive Date: 20100304
  Receipt Date: 20090813
  Transmission Date: 20100710
  Serious: Yes (Other)
  Sender: FDA-Public Use
  Company Number: US-003293

PATIENT
  Age: 2 Month
  Sex: Female
  Weight: 5.2 kg

DRUGS (2)
  1. ISOVUE-300 [Suspect]
     Indication: ANGIOGRAM
     Dosage: 45ML QD INTRACARDIAC
     Route: 016
     Dates: start: 20090813, end: 20090813
  2. ISOVUE-300 [Suspect]
     Indication: WILLIAMS SYNDROME
     Dosage: 45ML QD INTRACARDIAC
     Route: 016
     Dates: start: 20090813, end: 20090813

REACTIONS (4)
  - BLOOD PRESSURE DIASTOLIC INCREASED [None]
  - BLOOD PRESSURE SYSTOLIC DECREASED [None]
  - ELECTROCARDIOGRAM ST SEGMENT ABNORMAL [None]
  - INCREASED VENTRICULAR PRELOAD [None]
